FAERS Safety Report 5197374-3 (Version None)
Quarter: 2006Q4

REPORT INFORMATION
  Report Type: 
  Country: None (occurrence: None)
  Receive Date: 20060929
  Receipt Date: 20051011
  Transmission Date: 20070319
  Serious: Yes (Other)
  Sender: FDA-Public Use
  Company Number: D-05-055

PATIENT
  Sex: Male

DRUGS (2)
  1. BACLOFEN [Suspect]
     Indication: CEREBRAL PALSY
     Dosage: 3 MG, BID, PO
     Route: 048
     Dates: start: 20050501
  2. GLYCOLAX [Concomitant]

REACTIONS (5)
  - DIZZINESS [None]
  - DYSPNOEA [None]
  - OVERDOSE [None]
  - PETIT MAL EPILEPSY [None]
  - RASH [None]
